FAERS Safety Report 7104005-1 (Version None)
Quarter: 2010Q4

REPORT INFORMATION
  Report Type: 
  Country: None (occurrence: None)
  Receive Date: 20101115
  Receipt Date: 20101108
  Transmission Date: 20110411
  Serious: Yes (Other)
  Sender: FDA-Public Use
  Company Number: JP-ABBOTT-10P-087-0684174-00

PATIENT
  Age: 64 Year
  Sex: Male

DRUGS (3)
  1. KLARICID TABLETS [Suspect]
     Indication: HELICOBACTER INFECTION
     Route: 048
     Dates: start: 20100901, end: 20100901
  2. SAWACILLIN [Suspect]
     Indication: HELICOBACTER INFECTION
     Route: 048
     Dates: start: 20100901, end: 20100901
  3. SODIUM RABEPRAZOLE (PARIET TAB) [Concomitant]
     Indication: HELICOBACTER INFECTION
     Route: 048
     Dates: start: 20100601, end: 20100901

REACTIONS (1)
  - ANAPHYLACTIC SHOCK [None]
